FAERS Safety Report 6707248-1 (Version None)
Quarter: 2010Q2

REPORT INFORMATION
  Report Type: 
  Country: None (occurrence: None)
  Receive Date: 20100503
  Receipt Date: 20090402
  Transmission Date: 20101027
  Serious: No
  Sender: FDA-Public Use
  Company Number: US-ASTRAZENECA-2009UW08462

PATIENT
  Age: 24599 Day
  Sex: Male
  Weight: 59 kg

DRUGS (6)
  1. NEXIUM [Suspect]
     Indication: GASTROOESOPHAGEAL REFLUX DISEASE
     Route: 048
     Dates: start: 20090331
  2. COLCHICINE [Concomitant]
  3. TORSEMIDE [Concomitant]
  4. COZAAR [Concomitant]
  5. SUCRALFATE [Concomitant]
  6. PANGESTYME [Concomitant]

REACTIONS (1)
  - BLOOD GLUCOSE INCREASED [None]
